FAERS Safety Report 6582122-2 (Version None)
Quarter: 2010Q1

REPORT INFORMATION
  Report Type: 
  Country: None (occurrence: None)
  Receive Date: 20100212
  Receipt Date: 20100212
  Transmission Date: 20100710
  Serious: No
  Sender: FDA-Public Use
  Company Number: None

PATIENT
  Age: 27 Year
  Sex: Male

DRUGS (2)
  1. ATRIPLA [Suspect]
     Indication: HIV INFECTION
     Dosage: 600/200/300 PO QBEDTIME
     Route: 048
     Dates: start: 20100118, end: 20100125
  2. VITAMIN TAB [Concomitant]

REACTIONS (4)
  - OROPHARYNGEAL BLISTERING [None]
  - PAIN [None]
  - PRURITUS [None]
  - RASH MACULO-PAPULAR [None]
